FAERS Safety Report 14091798 (Version 1)
Quarter: 2017Q4

REPORT INFORMATION
  Report Type: Spontaneous
  Country: US (occurrence: US)
  Receive Date: 20171013
  Receipt Date: 20171013
  Transmission Date: 20180321
  Serious: No
  Sender: FDA-Public Use
  Company Number: None

PATIENT
  Age: 75 Year
  Sex: Female
  Weight: 54.3 kg

DRUGS (1)
  1. ERIBULIN MESYLATE [Suspect]
     Active Substance: ERIBULIN MESYLATE
     Indication: CERVIX CARCINOMA
     Dosage: OTHER FREQUENCY:D1/D8 Q 21 DY CYCL;?
     Route: 041
     Dates: start: 20170315, end: 20170927

REACTIONS (3)
  - Ulcer [None]
  - Cellulitis [None]
  - Osteomyelitis [None]

NARRATIVE: CASE EVENT DATE: 20171011
